FAERS Safety Report 15638999 (Version 1)
Quarter: 2018Q4

REPORT INFORMATION
  Report Type: Spontaneous
  Country: JP (occurrence: JP)
  Receive Date: 20181120
  Receipt Date: 20181120
  Transmission Date: 20190205
  Serious: Yes (Death, Other)
  Sender: FDA-Public Use
  Company Number: PHHY2017JP143430

PATIENT
  Age: 54 Year
  Sex: Male

DRUGS (2)
  1. IMATINIB. [Suspect]
     Active Substance: IMATINIB MESYLATE
     Dosage: 300 MG, QD
     Route: 048
     Dates: start: 200312
  2. IMATINIB. [Suspect]
     Active Substance: IMATINIB MESYLATE
     Indication: CHRONIC MYELOID LEUKAEMIA
     Dosage: 400 MG, QD
     Route: 048
     Dates: start: 200311, end: 200312

REACTIONS (4)
  - Leukopenia [Unknown]
  - Liver injury [Fatal]
  - Acute hepatitis B [Fatal]
  - Hepatitis B reactivation [Fatal]

NARRATIVE: CASE EVENT DATE: 20040511
